FAERS Safety Report 24806099 (Version 2)
Quarter: 2025Q1

REPORT INFORMATION
  Report Type: Spontaneous
  Country: IL (occurrence: IL)
  Receive Date: 20250103
  Receipt Date: 20250107
  Transmission Date: 20250409
  Serious: No
  Sender: EISAI
  Company Number: IL-Eisai-EC-2024-181630

PATIENT
  Age: 60 Year
  Sex: Male

DRUGS (2)
  1. LENVATINIB [Suspect]
     Active Substance: LENVATINIB
     Indication: Metastatic renal cell carcinoma
     Route: 048
  2. PEMBROLIZUMAB [Suspect]
     Active Substance: PEMBROLIZUMAB
     Indication: Metastatic renal cell carcinoma
     Route: 041

REACTIONS (2)
  - Malignant neoplasm progression [Unknown]
  - Hepatic function abnormal [Unknown]
